FAERS Safety Report 8274215-9 (Version None)
Quarter: 2012Q2

REPORT INFORMATION
  Report Type: 
  Country: None (occurrence: None)
  Receive Date: 20120409
  Receipt Date: 20120330
  Transmission Date: 20120825
  Serious: Yes (Hospitalization)
  Sender: FDA-Public Use
  Company Number: AT-008050

PATIENT
  Age: 31 Year
  Sex: Female

DRUGS (1)
  1. MENOPUR [Suspect]
     Indication: IN VITRO FERTILISATION
     Dosage: 2 DF DOSAGE FORM, 150 S.C.
     Route: 058
     Dates: start: 20120204, end: 20120212

REACTIONS (2)
  - ASCITES [None]
  - OVARIAN HYPERSTIMULATION SYNDROME [None]
